FAERS Safety Report 15918720 (Version 1)
Quarter: 2019Q1

REPORT INFORMATION
  Report Type: Spontaneous
  Country: US (occurrence: US)
  Receive Date: 20190205
  Receipt Date: 20190205
  Transmission Date: 20190417
  Serious: No
  Sender: FDA-Public Use
  Company Number: US-BAYER-2019-025514

PATIENT
  Age: 17 Month
  Sex: Male
  Weight: 11.34 kg

DRUGS (1)
  1. MIRALAX [Suspect]
     Active Substance: POLYETHYLENE GLYCOL 3350
     Indication: CONSTIPATION
     Dosage: UNK MIX FORMULA ALONG WITH MIRALAX AND 8 OZ OF WATER AND SHE HAS BEEN MIXING IT LIKE THAT AND GIVING
     Route: 048

REACTIONS (3)
  - Ear infection [None]
  - Drug ineffective for unapproved indication [Unknown]
  - Off label use [None]
